FAERS Safety Report 12926667 (Version 4)
Quarter: 2018Q1

REPORT INFORMATION
  Report Type: Spontaneous
  Country: US (occurrence: US)
  Receive Date: 20161108
  Receipt Date: 20180116
  Transmission Date: 20180508
  Serious: No
  Sender: FDA-Public Use
  Company Number: US-ASTRAZENECA-2016SF15483

PATIENT
  Age: 22786 Day
  Sex: Male
  Weight: 54 kg

DRUGS (7)
  1. BRILINTA [Suspect]
     Active Substance: TICAGRELOR
     Indication: ACUTE CORONARY SYNDROME
     Route: 048
     Dates: start: 20161027
  2. BRILINTA [Suspect]
     Active Substance: TICAGRELOR
     Indication: STENT PLACEMENT
     Route: 048
     Dates: start: 20161027
  3. HYPERICUM PERFORATUM [Concomitant]
     Active Substance: HYPERICUM PERFORATUM
  4. PRILOSEC [Suspect]
     Active Substance: OMEPRAZOLE MAGNESIUM
     Indication: GASTROOESOPHAGEAL REFLUX DISEASE
     Route: 048
  5. BRILINTA [Suspect]
     Active Substance: TICAGRELOR
     Indication: MYOCARDIAL INFARCTION
     Route: 048
     Dates: start: 20161027
  6. ACETYLSALICYLIC ACID [Concomitant]
     Active Substance: ASPIRIN
  7. ASPIRIN. [Concomitant]
     Active Substance: ASPIRIN
     Indication: SUPPLEMENTATION THERAPY

REACTIONS (33)
  - Contusion [Unknown]
  - Dysuria [Unknown]
  - Headache [Unknown]
  - Nausea [Unknown]
  - Abdominal discomfort [Unknown]
  - Feeling abnormal [Unknown]
  - Insomnia [Unknown]
  - Oedema [Unknown]
  - Diarrhoea [Unknown]
  - Haemorrhoids [Unknown]
  - Herpes zoster [Unknown]
  - Hypoaesthesia [Unknown]
  - Depressed mood [Unknown]
  - Faeces discoloured [Unknown]
  - Gastrooesophageal reflux disease [Unknown]
  - Musculoskeletal chest pain [Recovered/Resolved]
  - Haemorrhage [Unknown]
  - Ageusia [Unknown]
  - Anxiety [Unknown]
  - Medical device site bruise [Unknown]
  - Migraine [Unknown]
  - Abdominal distension [Unknown]
  - Sinus pain [Unknown]
  - Oral discomfort [Unknown]
  - Dysphagia [Unknown]
  - Weight increased [Unknown]
  - Peripheral swelling [Unknown]
  - Anaemia [Unknown]
  - Pain in extremity [Unknown]
  - Dry mouth [Unknown]
  - Dizziness [Unknown]
  - Drug dose omission [Unknown]
  - Influenza [Unknown]

NARRATIVE: CASE EVENT DATE: 20161027
